FAERS Safety Report 18047028 (Version 1)
Quarter: 2020Q3

REPORT INFORMATION
  Report Type: Spontaneous
  Country: IT (occurrence: IT)
  Receive Date: 20200721
  Receipt Date: 20200721
  Transmission Date: 20201103
  Serious: Yes (Other)
  Sender: FDA-Public Use
  Company Number: IT-ALKEM LABORATORIES LIMITED-IT-ALKEM-2020-03622

PATIENT
  Age: 57 Year
  Sex: Female

DRUGS (1)
  1. MYCOPHENOLATE MOFETIL. [Suspect]
     Active Substance: MYCOPHENOLATE MOFETIL
     Indication: PRODUCT USED FOR UNKNOWN INDICATION
     Dosage: UNK
     Route: 065

REACTIONS (3)
  - Arthritis bacterial [Unknown]
  - Scedosporium infection [Unknown]
  - End stage renal disease [Unknown]
